FAERS Safety Report 8612356-4 (Version None)
Quarter: 2012Q3

REPORT INFORMATION
  Report Type: 
  Country: None (occurrence: None)
  Receive Date: 20120822
  Receipt Date: 20120816
  Transmission Date: 20120928
  Serious: Yes (Disabling)
  Sender: FDA-Public Use
  Company Number: FR-TEVA-354125ISR

PATIENT
  Sex: Female

DRUGS (4)
  1. REQUIP [Suspect]
     Dosage: 14 MILLIGRAM DAILY; 6MG IN THE MORNING + 8MG IN THE EVENING
     Route: 048
  2. AZILECT [Suspect]
     Indication: PARKINSON'S DISEASE
     Dosage: 1 MILLIGRAM DAILY; LONG TERM TREATMENT
     Route: 048
  3. REQUIP [Suspect]
     Indication: PARKINSON'S DISEASE
     Dosage: 14 MILLIGRAM DAILY; 6MG IN THE MORNING + 8MG IN THE EVENING
     Route: 048
  4. SINEMET [Suspect]
     Indication: PARKINSON'S DISEASE
     Dosage: LEVODOPA/CARBIDOPA:100MG/10MG
     Route: 048
     Dates: end: 20120709

REACTIONS (2)
  - TENDONITIS [None]
  - BURSITIS [None]
